FAERS Safety Report 8998561 (Version 1)
Quarter: 2013Q1

REPORT INFORMATION
  Report Type: Spontaneous
  Country: PL (occurrence: PL)
  Receive Date: 20130103
  Receipt Date: 20130103
  Transmission Date: 20140127
  Serious: Yes (Other)
  Sender: FDA-Public Use
  Company Number: PL-TEVA-377824ISR

PATIENT
  Age: 52 Year
  Sex: Male

DRUGS (3)
  1. FLUDARABINE [Suspect]
     Indication: CHRONIC LYMPHOCYTIC LEUKAEMIA
     Dosage: 6 CYCLES
     Route: 065
     Dates: start: 201010, end: 201103
  2. CYCLOPHOSPHAMIDE [Suspect]
     Indication: CHRONIC LYMPHOCYTIC LEUKAEMIA
     Dosage: 6 CYCLES
     Route: 065
     Dates: start: 201010, end: 201103
  3. RITUXIMAB [Suspect]
     Indication: CHRONIC LYMPHOCYTIC LEUKAEMIA
     Dosage: 6 CYCLES
     Route: 065
     Dates: start: 201010, end: 201103

REACTIONS (4)
  - Lymphopenia [Unknown]
  - Hypogammaglobulinaemia [Unknown]
  - Neutropenia [Unknown]
  - Arthritis [Unknown]
